FAERS Safety Report 5100566-2 (Version None)
Quarter: 2006Q3

REPORT INFORMATION
  Report Type: 
  Country: None (occurrence: None)
  Receive Date: 20060909
  Receipt Date: 20060517
  Transmission Date: 20061208
  Serious: Yes (Hospitalization)
  Sender: FDA-Public Use
  Company Number: US-ABBOTT-06P-163-0333357-00

PATIENT
  Sex: Female
  Weight: 81.72 kg

DRUGS (15)
  1. HUMIRA [Suspect]
     Indication: RHEUMATOID ARTHRITIS
     Route: 058
     Dates: start: 20050901, end: 20051101
  2. HUMIRA [Suspect]
     Route: 058
     Dates: start: 20051101, end: 20051201
  3. HUMIRA [Suspect]
     Route: 058
     Dates: start: 20060207, end: 20060328
  4. METHOTREXATE [Concomitant]
     Indication: RHEUMATOID ARTHRITIS
     Route: 048
     Dates: end: 20050101
  5. METOPROLOL TARTRATE [Concomitant]
     Indication: BLOOD PRESSURE INCREASED
     Route: 048
  6. FUROSEMIDE [Concomitant]
     Indication: DRUG USE FOR UNKNOWN INDICATION
     Route: 048
  7. FUROSEMIDE [Concomitant]
     Route: 048
     Dates: start: 20060401
  8. POTASSIUM CHLORIDE [Concomitant]
     Indication: DRUG USE FOR UNKNOWN INDICATION
     Route: 048
  9. PANTOPRAZOLE SODIUM [Concomitant]
     Indication: DRUG USE FOR UNKNOWN INDICATION
     Route: 048
  10. SUCRALFATE [Concomitant]
     Indication: DRUG USE FOR UNKNOWN INDICATION
     Route: 048
  11. TEMAZEPAM [Concomitant]
     Indication: DRUG USE FOR UNKNOWN INDICATION
     Route: 048
  12. ALBUTEROL SPIROS [Concomitant]
     Indication: DRUG USE FOR UNKNOWN INDICATION
     Route: 055
  13. ALENDRONATE SODIUM [Concomitant]
     Indication: DRUG USE FOR UNKNOWN INDICATION
     Route: 048
  14. SPIRIVA [Concomitant]
     Indication: DRUG USE FOR UNKNOWN INDICATION
     Route: 055
  15. ESTROGENS CONJUGATED [Concomitant]
     Indication: DRUG USE FOR UNKNOWN INDICATION

REACTIONS (10)
  - ALOPECIA [None]
  - ASTHENIA [None]
  - CHRONIC OBSTRUCTIVE PULMONARY DISEASE [None]
  - DIARRHOEA [None]
  - INFLUENZA [None]
  - MYCOPLASMA INFECTION [None]
  - PNEUMONIA [None]
  - PYREXIA [None]
  - RASH [None]
  - VOMITING [None]
